FAERS Safety Report 16209739 (Version 1)
Quarter: 2019Q2

REPORT INFORMATION
  Report Type: Spontaneous
  Country: US (occurrence: US)
  Receive Date: 20190417
  Receipt Date: 20190417
  Transmission Date: 20190711
  Serious: Yes (Hospitalization, Other)
  Sender: FDA-Public Use
  Company Number: US-ELI_LILLY_AND_COMPANY-US201904008450

PATIENT
  Sex: Female

DRUGS (9)
  1. PREDNISONE. [Suspect]
     Active Substance: PREDNISONE
     Indication: NASOPHARYNGITIS
     Dosage: UNK UNK, UNKNOWN
     Route: 065
     Dates: start: 20190215
  2. PREDNISONE. [Suspect]
     Active Substance: PREDNISONE
     Indication: ASTHMA
     Dosage: UNK UNK, UNKNOWN
     Route: 065
     Dates: start: 20180918, end: 20181202
  3. PREDNISONE. [Suspect]
     Active Substance: PREDNISONE
     Indication: HERPES SIMPLEX PNEUMONIA
     Dosage: UNK UNK, UNKNOWN
     Route: 065
  4. PREDNISONE. [Suspect]
     Active Substance: PREDNISONE
     Indication: WHEEZING
     Dosage: UNK, UNKNOWN
     Route: 065
     Dates: start: 201806
  5. PREDNISONE. [Suspect]
     Active Substance: PREDNISONE
     Indication: BRONCHITIS
     Dosage: 40 MG, UNKNOWN
     Route: 065
     Dates: start: 20180126, end: 20180502
  6. PREDNISONE. [Suspect]
     Active Substance: PREDNISONE
     Indication: INFLUENZA
     Dosage: 40 MG, FOUR TIMES DAILY
     Route: 065
     Dates: start: 201901
  7. PREDNISONE. [Suspect]
     Active Substance: PREDNISONE
     Dosage: 60 UNK, UNKNOWN
     Route: 065
  8. FORTEO [Suspect]
     Active Substance: TERIPARATIDE
     Indication: PRODUCT USED FOR UNKNOWN INDICATION
     Dosage: UNK, UNKNOWN
     Route: 065
     Dates: start: 20170426
  9. PREDNISONE. [Suspect]
     Active Substance: PREDNISONE
     Dosage: 5 UNK
     Route: 065

REACTIONS (16)
  - Respiratory failure [Recovering/Resolving]
  - Asthma [Recovering/Resolving]
  - Oral pain [Unknown]
  - Pneumonia [Recovering/Resolving]
  - Oxygen saturation decreased [Recovering/Resolving]
  - Influenza [Recovering/Resolving]
  - Bronchitis [Recovering/Resolving]
  - Influenza [Recovering/Resolving]
  - Oxygen saturation decreased [Unknown]
  - Erythema [Unknown]
  - Bronchitis [Unknown]
  - Herpes simplex pneumonia [Recovering/Resolving]
  - Wheezing [Recovering/Resolving]
  - Nasopharyngitis [Unknown]
  - Asthma [Recovering/Resolving]
  - Peripheral swelling [Unknown]

NARRATIVE: CASE EVENT DATE: 2017
